FAERS Safety Report 13773664 (Version 2)
Quarter: 2017Q3

REPORT INFORMATION
  Report Type: Spontaneous
  Country: US (occurrence: US)
  Receive Date: 20170720
  Receipt Date: 20170724
  Transmission Date: 20171127
  Serious: Yes (Hospitalization, Other)
  Sender: FDA-Public Use
  Company Number: US-PFIZER INC-2017313304

PATIENT
  Age: 65 Year
  Sex: Female

DRUGS (3)
  1. REMICADE [Suspect]
     Active Substance: INFLIXIMAB
     Dosage: UNK
  2. XELJANZ [Suspect]
     Active Substance: TOFACITINIB CITRATE
     Dosage: 5 MG, UNK
  3. METHOTREXATE. [Suspect]
     Active Substance: METHOTREXATE
     Dosage: 12.5 MG, (2.5 MG TAB (5 TAB ORAL EVERY WEEK))
     Route: 048

REACTIONS (13)
  - Fatigue [Unknown]
  - Hand deformity [Unknown]
  - Psoriasis [Unknown]
  - Sepsis [Unknown]
  - Colitis ulcerative [Unknown]
  - Pain in extremity [Unknown]
  - Alanine aminotransferase increased [Unknown]
  - Joint stiffness [Unknown]
  - Urinary tract infection [Unknown]
  - Diarrhoea [Unknown]
  - Gastroenteritis viral [Unknown]
  - Arthralgia [Unknown]
  - Aspartate aminotransferase increased [Unknown]
